FAERS Safety Report 7148761-5 (Version None)
Quarter: 2010Q4

REPORT INFORMATION
  Report Type: 
  Country: None (occurrence: None)
  Receive Date: 20101209
  Receipt Date: 20101126
  Transmission Date: 20110411
  Serious: Yes (Death, Hospitalization, Other)
  Sender: FDA-Public Use
  Company Number: PL-ACTELION-A-CH2010-42102

PATIENT
  Sex: Female
  Weight: 9.2 kg

DRUGS (7)
  1. TRACLEER [Suspect]
     Indication: PULMONARY ARTERIAL HYPERTENSION
     Dosage: 20 MG, BID
     Route: 048
     Dates: start: 20100721, end: 20101113
  2. TRACLEER [Suspect]
     Dosage: 10 MG, BID
     Route: 048
     Dates: start: 20100619, end: 20100720
  3. ACENOCOUMAROL [Concomitant]
  4. SILDENAFIL [Concomitant]
  5. FUROSEMIDE [Concomitant]
  6. SPIRONOLACTONE [Concomitant]
  7. POTASSIUM GLUCONATE TAB [Concomitant]

REACTIONS (1)
  - PULMONARY HAEMORRHAGE [None]
